FAERS Safety Report 12402439 (Version 2)
Quarter: 2016Q2

REPORT INFORMATION
  Report Type: Spontaneous
  Country: NL (occurrence: NL)
  Receive Date: 20160525
  Receipt Date: 20160603
  Transmission Date: 20160815
  Serious: Yes (Life-Threatening, Hospitalization)
  Sender: FDA-Public Use
  Company Number: NL-ABBVIE-16K-114-1635997-00

PATIENT
  Age: 53 Year
  Sex: Male
  Weight: 95 kg

DRUGS (2)
  1. HUMIRA [Suspect]
     Active Substance: ADALIMUMAB
     Indication: ANKYLOSING SPONDYLITIS
     Route: 058
     Dates: start: 201509, end: 201601
  2. CLONAZEPAM. [Concomitant]
     Active Substance: CLONAZEPAM
     Indication: PRODUCT USED FOR UNKNOWN INDICATION
     Dates: start: 2010

REACTIONS (3)
  - Diverticulitis [Recovering/Resolving]
  - Immunodeficiency [Unknown]
  - Intestinal perforation [Recovering/Resolving]

NARRATIVE: CASE EVENT DATE: 20160113
